FAERS Safety Report 24559367 (Version 1)
Quarter: 2024Q4

REPORT INFORMATION
  Report Type: Report from Study
  Country: US (occurrence: US)
  Receive Date: 20241029
  Receipt Date: 20241029
  Transmission Date: 20250114
  Serious: Yes (Other)
  Sender: ALEXION PHARMACEUTICALS
  Company Number: US-ASTRAZENECA-202410USA019728US

PATIENT

DRUGS (40)
  1. BENRALIZUMAB [Suspect]
     Active Substance: BENRALIZUMAB
     Indication: Asthma
     Dosage: 30 MILLIGRAM, Q8W
  2. BENRALIZUMAB [Suspect]
     Active Substance: BENRALIZUMAB
     Dosage: 30 MILLIGRAM, Q8W
  3. BENRALIZUMAB [Suspect]
     Active Substance: BENRALIZUMAB
     Dosage: 30 MILLIGRAM, Q8W
  4. BENRALIZUMAB [Suspect]
     Active Substance: BENRALIZUMAB
     Dosage: 30 MILLIGRAM, Q8W
  5. BREZTRI [Concomitant]
     Active Substance: BUDESONIDE\FORMOTEROL\GLYCOPYRROLATE
     Route: 065
  6. BREZTRI [Concomitant]
     Active Substance: BUDESONIDE\FORMOTEROL\GLYCOPYRROLATE
  7. BREZTRI [Concomitant]
     Active Substance: BUDESONIDE\FORMOTEROL\GLYCOPYRROLATE
     Route: 065
  8. BREZTRI [Concomitant]
     Active Substance: BUDESONIDE\FORMOTEROL\GLYCOPYRROLATE
  9. ROSUVASTATIN [Concomitant]
     Active Substance: ROSUVASTATIN
  10. ROSUVASTATIN [Concomitant]
     Active Substance: ROSUVASTATIN
     Route: 065
  11. ALBUTEROL SULFATE [Concomitant]
     Active Substance: ALBUTEROL SULFATE
  12. ALBUTEROL SULFATE [Concomitant]
     Active Substance: ALBUTEROL SULFATE
     Route: 065
  13. ALLOPURINOL [Concomitant]
     Active Substance: ALLOPURINOL
  14. ALLOPURINOL [Concomitant]
     Active Substance: ALLOPURINOL
     Route: 065
  15. CARVEDILOL [Concomitant]
     Active Substance: CARVEDILOL
  16. CARVEDILOL [Concomitant]
     Active Substance: CARVEDILOL
  17. COLESEVELAM [Concomitant]
     Active Substance: COLESEVELAM
  18. COLESEVELAM [Concomitant]
     Active Substance: COLESEVELAM
  19. DULOXETINE [Concomitant]
     Active Substance: DULOXETINE
  20. DULOXETINE [Concomitant]
     Active Substance: DULOXETINE
  21. FLECAINIDE [Concomitant]
     Active Substance: FLECAINIDE
  22. FLECAINIDE [Concomitant]
     Active Substance: FLECAINIDE
  23. FUROSEMIDE [Concomitant]
     Active Substance: FUROSEMIDE
  24. FUROSEMIDE [Concomitant]
     Active Substance: FUROSEMIDE
     Route: 065
  25. GLIMEPIRIDE [Concomitant]
     Active Substance: GLIMEPIRIDE
  26. GLIMEPIRIDE [Concomitant]
     Active Substance: GLIMEPIRIDE
  27. IPRATROPIUM [Concomitant]
     Active Substance: IPRATROPIUM
     Dosage: 0.5-2.5
  28. IPRATROPIUM [Concomitant]
     Active Substance: IPRATROPIUM
     Dosage: 0.5-2.5
     Route: 065
  29. MAGNESIUM [Concomitant]
     Active Substance: MAGNESIUM
  30. MAGNESIUM [Concomitant]
     Active Substance: MAGNESIUM
     Route: 065
  31. MONTELUKAST [Concomitant]
     Active Substance: MONTELUKAST
  32. MONTELUKAST [Concomitant]
     Active Substance: MONTELUKAST
  33. VITAMINS [Concomitant]
     Active Substance: VITAMINS
  34. VITAMINS [Concomitant]
     Active Substance: VITAMINS
     Route: 065
  35. OMEPRAZOLE [Concomitant]
     Active Substance: OMEPRAZOLE
  36. POTASSIUM [Concomitant]
     Active Substance: POTASSIUM
     Dosage: 20 MEQ
  37. VALSARTAN [Concomitant]
     Active Substance: VALSARTAN
  38. VALSARTAN [Concomitant]
     Active Substance: VALSARTAN
  39. VITAMIN D [Concomitant]
     Active Substance: VITAMIN D NOS
  40. VITAMIN D [Concomitant]
     Active Substance: VITAMIN D NOS

REACTIONS (4)
  - Impaired gastric emptying [Unknown]
  - Cough [Unknown]
  - Dizziness [Unknown]
  - Dyspnoea [Unknown]
